FAERS Safety Report 6120436-0 (Version None)
Quarter: 2009Q1

REPORT INFORMATION
  Report Type: 
  Country: None (occurrence: None)
  Receive Date: 20090317
  Receipt Date: 20090306
  Transmission Date: 20090719
  Serious: Yes (Other)
  Sender: FDA-Public Use
  Company Number: DE-WYE-G02896209

PATIENT
  Sex: Female

DRUGS (7)
  1. TREVILOR [Suspect]
     Indication: DEPRESSION
     Route: 048
  2. TREVILOR [Suspect]
     Dosage: 75 MG 7-8 TIMES PER DAY
     Route: 048
  3. TREVILOR [Suspect]
     Route: 048
  4. TREVILOR RETARD [Suspect]
     Indication: DEPRESSION
     Route: 048
  5. TREVILOR RETARD [Suspect]
     Dosage: 75 MG 7-8 TIMES PER DAY
     Route: 048
  6. TREVILOR RETARD [Suspect]
     Route: 048
  7. TAVOR [Suspect]
     Indication: DEPRESSION
     Dosage: UNKNOWN
     Route: 048

REACTIONS (40)
  - ABNORMAL DREAMS [None]
  - ANOREXIA [None]
  - BLOOD CHOLESTEROL INCREASED [None]
  - CONSTIPATION [None]
  - DIARRHOEA [None]
  - DRUG ABUSE [None]
  - DRUG DEPENDENCE [None]
  - DRUG INEFFECTIVE [None]
  - DRY MOUTH [None]
  - FATIGUE [None]
  - HAEMORRHAGE SUBCUTANEOUS [None]
  - HEAD DISCOMFORT [None]
  - HEADACHE [None]
  - HOT FLUSH [None]
  - HYPERHIDROSIS [None]
  - HYPERSENSITIVITY [None]
  - HYPOAESTHESIA [None]
  - HYPOTENSION [None]
  - INTENTIONAL OVERDOSE [None]
  - LIBIDO DECREASED [None]
  - LIVER FUNCTION TEST ABNORMAL [None]
  - MICTURITION DISORDER [None]
  - MIGRAINE [None]
  - MOVEMENT DISORDER [None]
  - MUSCLE RIGIDITY [None]
  - MUSCLE TWITCHING [None]
  - NAUSEA [None]
  - ORGASM ABNORMAL [None]
  - PARAESTHESIA [None]
  - PRURITUS [None]
  - SEDATION [None]
  - SKIN DISORDER [None]
  - SOMNOLENCE [None]
  - TACHYCARDIA [None]
  - TINNITUS [None]
  - TREMOR [None]
  - URINARY RETENTION [None]
  - VASODILATATION [None]
  - VISUAL IMPAIRMENT [None]
  - WEIGHT INCREASED [None]
